FAERS Safety Report 25970774 (Version 1)
Quarter: 2025Q4

REPORT INFORMATION
  Report Type: Other
  Country: CA (occurrence: CA)
  Receive Date: 20251028
  Receipt Date: 20251028
  Transmission Date: 20260117
  Serious: Yes (Hospitalization)
  Sender: PFIZER
  Company Number: CA-PFIZER INC-202500212534

PATIENT
  Age: 77 Year
  Sex: Male

DRUGS (3)
  1. RITUXIMAB [Suspect]
     Active Substance: RITUXIMAB
     Indication: Follicular lymphoma
     Dosage: UNK
     Route: 065
  2. BENDAMUSTINE HYDROCHLORIDE [Suspect]
     Active Substance: BENDAMUSTINE HYDROCHLORIDE
     Indication: Follicular lymphoma
     Dosage: UNK
     Route: 065
  3. ROCEPHIN [Suspect]
     Active Substance: CEFTRIAXONE SODIUM
     Indication: Organising pneumonia
     Dosage: UNK (POWDER FOR SOLUTION INTRAMUSCULAR)
     Route: 065

REACTIONS (3)
  - COVID-19 [Recovering/Resolving]
  - Organising pneumonia [Recovering/Resolving]
  - Off label use [Unknown]
